FAERS Safety Report 9357544 (Version 1)
Quarter: 2013Q2

REPORT INFORMATION
  Report Type: Spontaneous
  Country: US (occurrence: US)
  Receive Date: 20130620
  Receipt Date: 20130620
  Transmission Date: 20140414
  Serious: No
  Sender: FDA-Public Use
  Company Number: US-BAYER-2013-074432

PATIENT
  Sex: Female

DRUGS (4)
  1. BETASERON [Suspect]
     Indication: MULTIPLE SCLEROSIS
  2. SKELAXIN [Concomitant]
  3. ARICEPT [Concomitant]
  4. PROVIGIL [Concomitant]

REACTIONS (3)
  - Injection site urticaria [None]
  - Injection site bruising [None]
  - Fatigue [None]
